FAERS Safety Report 16445309 (Version 1)
Quarter: 2019Q2

REPORT INFORMATION
  Report Type: Spontaneous
  Country: US (occurrence: US)
  Receive Date: 20190618
  Receipt Date: 20190618
  Transmission Date: 20190711
  Serious: No
  Sender: FDA-Public Use
  Company Number: US-ALLERGAN-1832488US

PATIENT
  Sex: Female

DRUGS (2)
  1. SARAFEM [Suspect]
     Active Substance: FLUOXETINE HYDROCHLORIDE
     Indication: DEPRESSION
     Dosage: 3 DF, QD
     Route: 048
  2. METOPROLOL. [Concomitant]
     Active Substance: METOPROLOL
     Indication: ATRIOVENTRICULAR BLOCK
     Dosage: UNK
     Route: 048

REACTIONS (1)
  - Off label use [Unknown]
